FAERS Safety Report 15966438 (Version 2)
Quarter: 2019Q2

REPORT INFORMATION
  Report Type: Report from Study
  Country: IL (occurrence: IL)
  Receive Date: 20190215
  Receipt Date: 20190410
  Transmission Date: 20190711
  Serious: Yes (Hospitalization)
  Sender: FDA-Public Use
  Company Number: PHHY2018IL071856

PATIENT
  Age: 53 Year
  Sex: Female

DRUGS (2)
  1. COSENTYX [Suspect]
     Active Substance: SECUKINUMAB
     Dosage: 150 MG, QMO
     Route: 058
  2. COSENTYX [Suspect]
     Active Substance: SECUKINUMAB
     Indication: ANKYLOSING SPONDYLITIS
     Dosage: 150 MG, QMO
     Route: 058
     Dates: start: 20170514

REACTIONS (15)
  - Pelvic abscess [Recovering/Resolving]
  - Back pain [Not Recovered/Not Resolved]
  - Influenza [Recovering/Resolving]
  - Oral fungal infection [Recovered/Resolved]
  - Fungal rhinitis [Recovered/Resolved]
  - Inflammatory marker increased [Not Recovered/Not Resolved]
  - Arthralgia [Not Recovered/Not Resolved]
  - Cough [Recovering/Resolving]
  - Drug ineffective [Not Recovered/Not Resolved]
  - Urethral discharge [Recovering/Resolving]
  - Rectal discharge [Recovering/Resolving]
  - Pyrexia [Recovered/Resolved]
  - Vaginal discharge [Recovering/Resolving]
  - Benign hepatic neoplasm [Not Recovered/Not Resolved]
  - Vocal cord inflammation [Recovering/Resolving]

NARRATIVE: CASE EVENT DATE: 20181229
